FAERS Safety Report 6668885-6 (Version None)
Quarter: 2010Q2

REPORT INFORMATION
  Report Type: 
  Country: None (occurrence: None)
  Receive Date: 20100406
  Receipt Date: 20100402
  Transmission Date: 20101027
  Serious: Yes (Death)
  Sender: FDA-Public Use
  Company Number: BE-ROCHE-693873

PATIENT
  Sex: Female
  Weight: 65 kg

DRUGS (8)
  1. ROACTEMRA [Suspect]
     Indication: RHEUMATOID ARTHRITIS
     Dosage: FREQUENCY: EVERY 4 WEEKS (Q4W)
     Route: 042
     Dates: start: 20090101, end: 20100301
  2. ROACTEMRA [Suspect]
     Route: 042
     Dates: start: 20091201
  3. ROACTEMRA [Suspect]
     Route: 042
     Dates: start: 20100101
  4. ROACTEMRA [Suspect]
     Route: 042
     Dates: start: 20100201
  5. ROACTEMRA [Suspect]
     Route: 042
     Dates: start: 20100303
  6. METHOTREXATE [Concomitant]
     Indication: RHEUMATOID ARTHRITIS
     Dosage: DOSAGE: NOT REPORTED
  7. DAFALGAN CODEINE [Concomitant]
     Dosage: FREQUENCY: IF NEEDED
  8. ARAVA [Concomitant]
     Route: 042

REACTIONS (1)
  - SEPTIC SHOCK [None]
